FAERS Safety Report 4989346-6 (Version None)
Quarter: 2006Q2

REPORT INFORMATION
  Report Type: 
  Country: None (occurrence: None)
  Receive Date: 20060426
  Receipt Date: 20060410
  Transmission Date: 20061013
  Serious: Yes (Hospitalization)
  Sender: FDA-Public Use
  Company Number: DSA_28060_2006

PATIENT
  Age: 72 Year
  Sex: Female

DRUGS (6)
  1. RENIVACE [Suspect]
     Indication: HYPERTENSION
     Dosage: 2.5 MG Q DAY PO
     Route: 048
     Dates: end: 20060401
  2. RENIVACE [Suspect]
     Indication: HYPERTENSION
     Dosage: 5 MG Q DAY PO
     Route: 048
  3. RENIVACE [Suspect]
     Indication: HYPERTENSION
     Dosage: 2.5 MG Q DAY PO
     Route: 048
  4. DEPROMEL [Suspect]
     Indication: DEPRESSIVE SYMPTOM
     Dosage: DF PO
     Route: 048
     Dates: end: 20060401
  5. PAXIL [Concomitant]
  6. MEILAX [Concomitant]

REACTIONS (5)
  - BLOOD PRESSURE SYSTOLIC INCREASED [None]
  - BRADYCARDIA [None]
  - DYSSTASIA [None]
  - FALL [None]
  - HYPOTENSION [None]
